FAERS Safety Report 6588140-2 (Version None)
Quarter: 2010Q1

REPORT INFORMATION
  Report Type: 
  Country: None (occurrence: None)
  Receive Date: 20100218
  Receipt Date: 20100211
  Transmission Date: 20100710
  Serious: Yes (Hospitalization, Other)
  Sender: FDA-Public Use
  Company Number: FR-B.I. PHARMACEUTICALS,INC./RIDGEFIELD-2010-FF-00140FF

PATIENT
  Sex: Male

DRUGS (15)
  1. SPIRIVA [Suspect]
     Route: 055
     Dates: end: 20080909
  2. THEOSTAT [Suspect]
     Dates: end: 20080909
  3. EPINITRIL [Suspect]
     Route: 048
     Dates: end: 20080911
  4. SYMBICORT [Suspect]
     Route: 055
     Dates: end: 20080909
  5. FUROSEMIDE [Suspect]
     Route: 048
  6. RISPERDAL [Suspect]
     Route: 048
  7. CACIT [Concomitant]
  8. CASODEX [Concomitant]
  9. FORLAX [Concomitant]
  10. HEMIGOXINE [Concomitant]
  11. NEXIUM [Concomitant]
  12. SINGULAIR [Concomitant]
  13. TADENAN [Concomitant]
  14. INSULATARD [Concomitant]
  15. SERESTA [Concomitant]
     Dosage: 75 MG
     Route: 048
     Dates: start: 20080909, end: 20080911

REACTIONS (3)
  - COMA [None]
  - FACE INJURY [None]
  - FALL [None]
